FAERS Safety Report 8276740-3 (Version None)
Quarter: 2012Q2

REPORT INFORMATION
  Report Type: 
  Country: None (occurrence: None)
  Receive Date: 20120412
  Receipt Date: 20120405
  Transmission Date: 20120825
  Serious: Yes (Hospitalization)
  Sender: FDA-Public Use
  Company Number: DE-PFIZER INC-2012086125

PATIENT
  Age: 40 Year
  Sex: Female
  Weight: 83.5 kg

DRUGS (2)
  1. MINULET [Concomitant]
     Indication: CONTRACEPTION
     Dosage: UNK
     Dates: start: 20080102
  2. SOMATROPIN [Suspect]
     Indication: GROWTH HORMONE DEFICIENCY
     Dosage: 0.8 MG, 1X/DAY, 7 INJECTIONS/WEEK
     Dates: start: 20080107

REACTIONS (1)
  - PITUITARY TUMOUR RECURRENT [None]
